FAERS Safety Report 9512516 (Version 1)
Quarter: 2013Q1

REPORT INFORMATION
  Report Type: Spontaneous
  Country: US (occurrence: None)
  Receive Date: 20130305
  Receipt Date: 20130305
  Transmission Date: 20140127
  Serious: Yes (Other)
  Sender: FDA-Public Use
  Company Number: 163-21880-12052098

PATIENT
  Age: 56 Year
  Sex: Male

DRUGS (2)
  1. REVLIMID (LENALIDOIMDE) (25 MILLIGRAM, CAPSULES) [Suspect]
     Indication: PLASMA CELL MYELOMA
     Dosage: DAILY X 21 DAYS, 7 DAYS OFF
     Route: 048
     Dates: start: 20120420
  2. ZOMETA (ZOLDRONIC ACID)  (INJECTION) [Concomitant]

REACTIONS (5)
  - Pain [None]
  - Arthralgia [None]
  - Erythema [None]
  - Skin irritation [None]
  - Bone pain [None]
